FAERS Safety Report 11849233 (Version 2)
Quarter: 2015Q4

REPORT INFORMATION
  Report Type: Spontaneous
  Country: US (occurrence: US)
  Receive Date: 20151218
  Receipt Date: 20151225
  Transmission Date: 20160305
  Serious: Yes (Other)
  Sender: FDA-Public Use
  Company Number: US-TEVA-619536ACC

PATIENT
  Sex: Female

DRUGS (1)
  1. PARAGARD T 380A [Suspect]
     Active Substance: COPPER
     Indication: CONTRACEPTION
     Route: 065
     Dates: end: 20151207

REACTIONS (4)
  - Device breakage [Not Recovered/Not Resolved]
  - Medical device complication [Not Recovered/Not Resolved]
  - Vaginal haemorrhage [Unknown]
  - Device dislocation [Unknown]
